FAERS Safety Report 7175245-0 (Version None)
Quarter: 2010Q4

REPORT INFORMATION
  Report Type: 
  Country: None (occurrence: None)
  Receive Date: 20101220
  Receipt Date: 20100302
  Transmission Date: 20110411
  Serious: No
  Sender: FDA-Public Use
  Company Number: US-AMGEN-TCS396329

PATIENT

DRUGS (5)
  1. ENBREL [Suspect]
     Indication: PSORIASIS
     Dosage: 50 MG, QWK
     Route: 058
     Dates: start: 20080801
  2. PREDNISONE [Concomitant]
     Dosage: UNK UNK, UNK
  3. TACROLIMUS [Concomitant]
     Dosage: UNK UNK, UNK
     Route: 061
  4. HALOBETASOL PROPRIONATE [Concomitant]
     Dosage: UNK UNK, UNK
     Route: 061
  5. EFALIZUMAB [Concomitant]
     Dosage: UNK UNK, UNK

REACTIONS (1)
  - DRUG INEFFECTIVE [None]
